FAERS Safety Report 12550040 (Version 7)
Quarter: 2016Q4

REPORT INFORMATION
  Report Type: Spontaneous
  Country: CA (occurrence: CA)
  Receive Date: 20160712
  Receipt Date: 20161219
  Transmission Date: 20170207
  Serious: Yes (Other)
  Sender: FDA-Public Use
  Company Number: CA-GLAXOSMITHKLINE-CA2016GSK088316

PATIENT
  Age: 38 Year
  Sex: Male

DRUGS (14)
  1. COSENTYX [Suspect]
     Active Substance: SECUKINUMAB
     Indication: PSORIATIC ARTHROPATHY
     Dosage: 300 MG, QMO
     Route: 058
     Dates: start: 20160909
  2. METHOTREXATE. [Concomitant]
     Active Substance: METHOTREXATE
  3. HUMIRA [Concomitant]
     Active Substance: ADALIMUMAB
  4. COSENTYX [Suspect]
     Active Substance: SECUKINUMAB
     Indication: ANKYLOSING SPONDYLITIS
     Dosage: 150 MG, QMO
     Route: 058
     Dates: start: 20160608, end: 20160810
  5. DOVONEX [Concomitant]
     Active Substance: CALCIPOTRIENE
  6. ALLOPURINOL. [Concomitant]
     Active Substance: ALLOPURINOL
  7. OTEZLA [Concomitant]
     Active Substance: APREMILAST
  8. COSENTYX [Suspect]
     Active Substance: SECUKINUMAB
     Indication: PSORIASIS
     Dosage: 300 MG, QMO
     Route: 058
     Dates: start: 20161030
  9. COLCHICINE. [Concomitant]
     Active Substance: COLCHICINE
  10. VOLTAREN [Suspect]
     Active Substance: DICLOFENAC SODIUM
     Indication: PRODUCT USED FOR UNKNOWN INDICATION
     Dosage: UNK
     Route: 065
  11. FUROSEMIDE. [Concomitant]
     Active Substance: FUROSEMIDE
  12. SIMPONI [Concomitant]
     Active Substance: GOLIMUMAB
  13. CELEBREX [Concomitant]
     Active Substance: CELECOXIB
  14. CIMZIA [Concomitant]
     Active Substance: CERTOLIZUMAB PEGOL

REACTIONS (17)
  - Coccydynia [Unknown]
  - Spinal pain [Unknown]
  - Peripheral swelling [Not Recovered/Not Resolved]
  - Asthenia [Unknown]
  - Weight increased [Unknown]
  - Skin plaque [Unknown]
  - Pruritus [Unknown]
  - Drug effect incomplete [Unknown]
  - Fatigue [Unknown]
  - Ankylosing spondylitis [Unknown]
  - Neck pain [Unknown]
  - Joint lock [Unknown]
  - Increased appetite [Unknown]
  - Arthralgia [Not Recovered/Not Resolved]
  - Joint swelling [Not Recovered/Not Resolved]
  - Back pain [Unknown]
  - Hypersomnia [Unknown]

NARRATIVE: CASE EVENT DATE: 20160608
